FAERS Safety Report 20142832 (Version 1)
Quarter: 2021Q4

REPORT INFORMATION
  Report Type: Report from Study
  Country: CO (occurrence: CO)
  Receive Date: 20211202
  Receipt Date: 20211202
  Transmission Date: 20220303
  Serious: Yes (Other)
  Sender: FDA-Public Use
  Company Number: CO-JNJFOC-20211158191

PATIENT
  Age: 61 Year
  Sex: Male
  Weight: 65 kg

DRUGS (1)
  1. IMBRUVICA [Suspect]
     Active Substance: IBRUTINIB
     Indication: Chronic lymphocytic leukaemia
     Route: 048
     Dates: start: 20190430

REACTIONS (2)
  - Asphyxia [Unknown]
  - Cough [Unknown]

NARRATIVE: CASE EVENT DATE: 20211101
